FAERS Safety Report 14540282 (Version 1)
Quarter: 2018Q1

REPORT INFORMATION
  Report Type: Spontaneous
  Country: US (occurrence: US)
  Receive Date: 20180216
  Receipt Date: 20180216
  Transmission Date: 20180509
  Serious: No
  Sender: FDA-Public Use
  Company Number: US-JNJFOC-20180131322

PATIENT
  Age: 96 Year
  Sex: Female
  Weight: 48.08 kg

DRUGS (6)
  1. TYLENOL 8HR [Suspect]
     Active Substance: ACETAMINOPHEN
     Indication: NEURALGIA
     Dosage: 1 TABLET IN THE MORNING AND 1 TABLET IN THE EVENING (PAST USE)
     Route: 048
  2. BABY ASPIRIN [Concomitant]
     Active Substance: ASPIRIN
     Indication: ANTICOAGULANT THERAPY
     Route: 065
  3. TYLENOL 8HR [Suspect]
     Active Substance: ACETAMINOPHEN
     Indication: BACK PAIN
     Dosage: 1 TABLET IN THE MORNING AND 1 TABLET IN THE EVENING (PAST USE)
     Route: 048
  4. PLAVIX [Concomitant]
     Active Substance: CLOPIDOGREL BISULFATE
     Indication: ANTICOAGULANT THERAPY
     Route: 065
  5. TYLENOL 8HR [Suspect]
     Active Substance: ACETAMINOPHEN
     Indication: NEURALGIA
     Route: 048
     Dates: start: 20180124
  6. TYLENOL 8HR [Suspect]
     Active Substance: ACETAMINOPHEN
     Indication: BACK PAIN
     Route: 048
     Dates: start: 20180124

REACTIONS (3)
  - Inappropriate schedule of drug administration [Unknown]
  - Incorrect dose administered [Unknown]
  - Product use in unapproved indication [Unknown]
